FAERS Safety Report 17440772 (Version 1)
Quarter: 2020Q1

REPORT INFORMATION
  Report Type: Spontaneous
  Country: US (occurrence: US)
  Receive Date: 20200220
  Receipt Date: 20200220
  Transmission Date: 20200409
  Serious: Yes (Disabling)
  Sender: FDA-Public Use
  Company Number: None

PATIENT
  Age: 65 Year
  Sex: Female
  Weight: 55.35 kg

DRUGS (14)
  1. CLOPIDOGREL [Concomitant]
     Active Substance: CLOPIDOGREL BISULFATE
  2. VITAMIN B12 [Concomitant]
     Active Substance: CYANOCOBALAMIN
  3. POTASSIUM [Concomitant]
     Active Substance: POTASSIUM
  4. TIMOLOL EYE GEL [Concomitant]
  5. MAGNESIUM [Concomitant]
     Active Substance: MAGNESIUM
  6. DESSICATED LIVER TABLETS [Concomitant]
  7. FLECAININE [Concomitant]
  8. VITAMIN D3 [Concomitant]
     Active Substance: CHOLECALCIFEROL
  9. PLAVIX GENERIC CLOPIDOGREL [Suspect]
     Active Substance: CLOPIDOGREL BISULFATE
     Indication: VASCULAR STENT THROMBOSIS
     Dosage: ?          QUANTITY:1 TABLET(S);?
     Route: 048
     Dates: start: 20130227, end: 20200204
  10. STENTS IN HEART [Concomitant]
  11. AREDS [Concomitant]
     Active Substance: MINERALS\VITAMINS
  12. CARVEDILOL. [Concomitant]
     Active Substance: CARVEDILOL
  13. PLAVIX GENERIC CLOPIDOGREL [Suspect]
     Active Substance: CLOPIDOGREL BISULFATE
     Indication: THROMBOSIS PROPHYLAXIS
     Dosage: ?          QUANTITY:1 TABLET(S);?
     Route: 048
     Dates: start: 20130227, end: 20200204
  14. LOSARTON [Concomitant]

REACTIONS (4)
  - Therapy cessation [None]
  - Neovascular age-related macular degeneration [None]
  - Eye haemorrhage [None]
  - Refusal of treatment by patient [None]

NARRATIVE: CASE EVENT DATE: 20160528
